FAERS Safety Report 9055241 (Version 1)
Quarter: 2013Q1

REPORT INFORMATION
  Report Type: Spontaneous
  Country: US (occurrence: US)
  Receive Date: 20130206
  Receipt Date: 20130206
  Transmission Date: 20140127
  Serious: Yes (Other)
  Sender: FDA-Public Use
  Company Number: US-PFIZER INC-2013047707

PATIENT
  Age: 79 Year
  Sex: Female
  Weight: 48.5 kg

DRUGS (3)
  1. NIFEDIPINE [Suspect]
     Indication: HYPERTENSION
     Dosage: 90 MG, 1X/DAY
     Route: 048
  2. BETAPACE [Interacting]
     Indication: ATRIAL FIBRILLATION
     Dosage: UNK
     Dates: start: 20121219
  3. HYDROCHLOROTHIAZIDE [Concomitant]
     Indication: HYPERTENSION
     Dosage: UNK

REACTIONS (5)
  - Atrial fibrillation [Unknown]
  - Loss of consciousness [Unknown]
  - Malaise [Unknown]
  - Vomiting [Unknown]
  - Drug interaction [Unknown]
